FAERS Safety Report 8134341-1 (Version None)
Quarter: 2012Q1

REPORT INFORMATION
  Report Type: 
  Country: None (occurrence: None)
  Receive Date: 20120103
  Receipt Date: 20111110
  Transmission Date: 20120608
  Serious: No
  Sender: FDA-Public Use
  Company Number: AE-2011-003304

PATIENT
  Age: 29 Year
  Sex: Female
  Weight: 54.8852 kg

DRUGS (6)
  1. PEGINTERFERON (PEGINTERFERON ALFA-2A) [Concomitant]
  2. PEPTO BISMOL (BISMUTH SUBSALICYLATE) [Concomitant]
  3. RIBAVIRIN [Concomitant]
  4. INCIVEK [Suspect]
     Dosage: 2571.4286 MG (750 MG, 1 IN 7 HR), ORAL
     Route: 048
     Dates: start: 20110930, end: 20111109
  5. IMMODIUM (LOPERAM HYDROCHLORIDE) [Concomitant]
  6. EXTRA STRENGTH TYLENOL [Concomitant]

REACTIONS (5)
  - UPPER RESPIRATORY TRACT INFECTION [None]
  - FEELING ABNORMAL [None]
  - PHARYNGITIS [None]
  - WHITE BLOOD CELL COUNT DECREASED [None]
  - DIARRHOEA [None]
